FAERS Safety Report 6814967-5 (Version None)
Quarter: 2010Q2

REPORT INFORMATION
  Report Type: 
  Country: None (occurrence: None)
  Receive Date: 20100628
  Receipt Date: 20100611
  Transmission Date: 20101027
  Serious: Yes (Other)
  Sender: FDA-Public Use
  Company Number: AUR-APU-2010-01486

PATIENT
  Age: 39 Year
  Sex: Female

DRUGS (5)
  1. CITALOPRAM HYDROBROMIDE [Suspect]
     Indication: DEPRESSION
     Dosage: 20MG, DAILY, ORAL
     Route: 048
     Dates: start: 20060101, end: 20100324
  2. REBIF [Suspect]
     Indication: MULTIPLE SCLEROSIS
     Dosage: 44 MCG, 3XWK, SQ
     Dates: start: 20090316, end: 20100315
  3. ATENOLOL [Concomitant]
  4. TYLENOL [Suspect]
  5. ZOLOFT [Concomitant]

REACTIONS (8)
  - ABORTION SPONTANEOUS [None]
  - CERVIX DISORDER [None]
  - DRUG EXPOSURE DURING PREGNANCY [None]
  - INFLUENZA LIKE ILLNESS [None]
  - MOOD ALTERED [None]
  - THROMBOSIS [None]
  - TWIN PREGNANCY [None]
  - VAGINAL HAEMORRHAGE [None]
